FAERS Safety Report 5898041-0 (Version None)
Quarter: 2008Q3

REPORT INFORMATION
  Report Type: 
  Country: None (occurrence: None)
  Receive Date: 20080905
  Receipt Date: 20080423
  Transmission Date: 20090109
  Serious: Yes (Other)
  Sender: FDA-Public Use
  Company Number: WAES 0804USA05107

PATIENT
  Age: 55 Year
  Sex: Male

DRUGS (3)
  1. MAXALT [Suspect]
     Indication: MIGRAINE
     Dosage: 10 MG/1X/PO
     Route: 048
     Dates: start: 20080408, end: 20080408
  2. DEPAKOTE [Concomitant]
  3. PROZAC [Concomitant]

REACTIONS (1)
  - URTICARIA [None]
